FAERS Safety Report 8999221 (Version 1)
Quarter: 2013Q1

REPORT INFORMATION
  Report Type: Report from Study
  Country: US (occurrence: US)
  Receive Date: 20130103
  Receipt Date: 20130103
  Transmission Date: 20140127
  Serious: Yes (Hospitalization)
  Sender: FDA-Public Use
  Company Number: US-BRISTOL-MYERS SQUIBB COMPANY-15222672

PATIENT
  Age: 67 Year
  Sex: Male

DRUGS (4)
  1. DASATINIB [Suspect]
     Indication: PROSTATE CANCER
     Dosage: LAST DAY OF DOSING IS 27JUL10.
     Route: 048
     Dates: start: 20100511, end: 20100731
  2. DOCETAXEL [Suspect]
     Indication: PROSTATE CANCER
     Dosage: 11MAY10:75MG/M2; ?C4: 27JUL10 60MG/M2
     Route: 042
     Dates: start: 20100511, end: 20100727
  3. PREDNISONE [Suspect]
     Indication: PROSTATE CANCER
     Dosage: 5MG BID
     Route: 048
     Dates: start: 20100511
  4. DEXAMETHASONE [Suspect]
     Indication: PREMEDICATION
     Route: 048
     Dates: start: 20100511

REACTIONS (7)
  - Confusional state [Recovered/Resolved]
  - Hypotension [Recovered/Resolved]
  - Dehydration [Recovered/Resolved]
  - Urinary retention [Recovered/Resolved]
  - Fatigue [Recovered/Resolved]
  - Constipation [Recovered/Resolved]
  - Decreased appetite [Not Recovered/Not Resolved]
